FAERS Safety Report 4297676-9 (Version None)
Quarter: 2004Q1

REPORT INFORMATION
  Report Type: 
  Country: None (occurrence: None)
  Receive Date: 20040213
  Receipt Date: 20040129
  Transmission Date: 20041129
  Serious: Yes (Death, Hospitalization)
  Sender: FDA-Public Use
  Company Number: 2004-DE-00487GD

PATIENT
  Age: 78 Year
  Sex: Male

DRUGS (1)
  1. METHOTREXATE [Suspect]
     Indication: MALIGNANT HISTIOCYTOSIS
     Dosage: 7,5 MG PER WEEK (WEEKLY)

REACTIONS (20)
  - ACUTE RESPIRATORY FAILURE [None]
  - ALVEOLITIS [None]
  - BLOOD BICARBONATE INCREASED [None]
  - BLOOD PH DECREASED [None]
  - BREATH SOUNDS DECREASED [None]
  - CREPITATIONS [None]
  - DYSPNOEA [None]
  - FATIGUE [None]
  - GENERAL PHYSICAL HEALTH DETERIORATION [None]
  - LUNG INFILTRATION [None]
  - LUNG NEOPLASM [None]
  - OXYGEN SATURATION DECREASED [None]
  - PCO2 INCREASED [None]
  - PLEURAL EFFUSION [None]
  - PNEUMONIA [None]
  - PNEUMONITIS [None]
  - PO2 DECREASED [None]
  - PRODUCTIVE COUGH [None]
  - SPUTUM ABNORMAL [None]
  - WHEEZING [None]
